FAERS Safety Report 10050119 (Version 1)
Quarter: 2014Q1

REPORT INFORMATION
  Report Type: Spontaneous
  Country: US (occurrence: None)
  Receive Date: 20140331
  Receipt Date: 20140331
  Transmission Date: 20141002
  Serious: Yes (Disabling)
  Sender: FDA-Public Use
  Company Number: None

PATIENT
  Age: 12 Day
  Sex: Male
  Weight: 4.04 kg

DRUGS (1)
  1. CEPHALEXIN [Suspect]
     Indication: INFECTION PROPHYLAXIS
     Dosage: 1 CAPSULE AT BEDTIME FOR 3 WEEK, ONCE DAILY, TAKEN BY MOUTH
     Route: 048
     Dates: start: 20140312, end: 20140327

REACTIONS (7)
  - Diarrhoea neonatal [None]
  - Haemorrhage [None]
  - Flatulence [None]
  - Skin fissures [None]
  - Fungal infection [None]
  - Abdominal discomfort [None]
  - Exposure during breast feeding [None]
